FAERS Safety Report 17754809 (Version 2)
Quarter: 2020Q2

REPORT INFORMATION
  Report Type: Other
  Country: US (occurrence: US)
  Receive Date: 20200507
  Receipt Date: 20200626
  Transmission Date: 20200714
  Serious: Yes (Other)
  Sender: FDA-Public Use
  Company Number: US-INTERCEPT-PM2020001026

PATIENT
  Age: 56 Year
  Sex: Female

DRUGS (2)
  1. OCALIVA [Suspect]
     Active Substance: OBETICHOLIC ACID
     Dosage: 5 MG, QD
     Route: 048
     Dates: start: 20200429
  2. OCALIVA [Suspect]
     Active Substance: OBETICHOLIC ACID
     Indication: PRIMARY BILIARY CHOLANGITIS
     Dosage: 5 MG, QD
     Route: 048
     Dates: start: 2018, end: 20200427

REACTIONS (10)
  - Musculoskeletal pain [Unknown]
  - Vomiting [Unknown]
  - Procedural pain [Unknown]
  - Abdominal pain [Unknown]
  - Abdominal discomfort [Unknown]
  - Cholelithiasis [Recovered/Resolved]
  - Hepatic enzyme abnormal [Unknown]
  - Cholecystectomy [Recovered/Resolved]
  - Umbilical hernia repair [Recovered/Resolved]
  - Therapy interrupted [Recovered/Resolved]

NARRATIVE: CASE EVENT DATE: 202004
